FAERS Safety Report 9049389 (Version 3)
Quarter: 2013Q2

REPORT INFORMATION
  Report Type: Spontaneous
  Country: US (occurrence: US)
  Receive Date: 20130205
  Receipt Date: 20130514
  Transmission Date: 20140414
  Serious: No
  Sender: FDA-Public Use
  Company Number: US-PFIZER INC-2013040888

PATIENT
  Age: 60 Year
  Sex: Female
  Weight: 47.17 kg

DRUGS (2)
  1. TIKOSYN [Suspect]
     Indication: ATRIAL FLUTTER
     Dosage: 500 UG, 2X/DAY
     Route: 048
  2. TIKOSYN [Suspect]
     Dosage: 250 UG, 2X/DAY

REACTIONS (4)
  - Fall [Unknown]
  - Blood creatinine abnormal [Unknown]
  - Blood potassium abnormal [Unknown]
  - Malaise [Unknown]
